FAERS Safety Report 9080526 (Version 1)
Quarter: 2013Q1

REPORT INFORMATION
  Report Type: Spontaneous
  Country: CH (occurrence: CH)
  Receive Date: 20130131
  Receipt Date: 20130131
  Transmission Date: 20140127
  Serious: Yes (Life-Threatening, Hospitalization, Other)
  Sender: FDA-Public Use
  Company Number: PHHY2013CH008261

PATIENT
  Age: 69 Year
  Sex: Female

DRUGS (6)
  1. SINTROM [Suspect]
     Indication: EMBOLISM VENOUS
     Dosage: UNK UKN, UNK
     Route: 048
  2. VOLTARENE [Suspect]
     Indication: BACK PAIN
     Dosage: 50 MG, PER DAY
     Route: 048
  3. CONCOR [Suspect]
     Indication: MYOCARDIAL ISCHAEMIA
     Dosage: 2.5 MG, PER DAY
  4. DAFALGAN [Concomitant]
     Dosage: 1 G, PER DAY
  5. LEVOTHYROXINE [Concomitant]
     Dosage: 50 UG, PER DAY
  6. SIMVASTATINE [Concomitant]
     Dosage: 1XDAY

REACTIONS (11)
  - Diverticulum intestinal [Unknown]
  - Gastric ulcer [Unknown]
  - Gastrointestinal haemorrhage [Unknown]
  - Haematochezia [Unknown]
  - Haemodynamic instability [Unknown]
  - Hypotension [Unknown]
  - Melaena [Unknown]
  - Anaemia [Unknown]
  - Fall [Unknown]
  - Renal failure acute [Unknown]
  - Coagulation time prolonged [Unknown]
